FAERS Safety Report 5164591-8 (Version None)
Quarter: 2006Q4

REPORT INFORMATION
  Report Type: 
  Country: None (occurrence: None)
  Receive Date: 20061205
  Receipt Date: 20061124
  Transmission Date: 20070319
  Serious: Yes (Hospitalization, Other)
  Sender: FDA-Public Use
  Company Number: CA-MERCK-0611CAN00188

PATIENT
  Age: 41 Year
  Sex: Female

DRUGS (2)
  1. COZAAR [Suspect]
     Indication: HYPERTENSION
     Route: 048
     Dates: start: 20051109
  2. CEPHALEXIN HYDROCHLORIDE [Concomitant]
     Indication: LOWER RESPIRATORY TRACT INFECTION
     Route: 065
     Dates: start: 20051021, end: 20051031

REACTIONS (1)
  - ASTHMA [None]
